FAERS Safety Report 5316986-7 (Version None)
Quarter: 2007Q1

REPORT INFORMATION
  Report Type: 
  Country: None (occurrence: None)
  Receive Date: 20070130
  Receipt Date: 20061130
  Transmission Date: 20070707
  Serious: No
  Sender: FDA-Public Use
  Company Number: 200619738US

PATIENT
  Age: 38 Year
  Sex: Female

DRUGS (1)
  1. KETEK [Suspect]
     Indication: SINUSITIS
     Dosage: 400 MG BID PO
     Route: 048
     Dates: start: 20061030, end: 20061101

REACTIONS (8)
  - ABDOMINAL PAIN UPPER [None]
  - ANOREXIA [None]
  - DEPRESSION [None]
  - HEADACHE [None]
  - NAUSEA [None]
  - NECK PAIN [None]
  - RASH [None]
  - VOMITING [None]
